FAERS Safety Report 8082097-3 (Version None)
Quarter: 2012Q1

REPORT INFORMATION
  Report Type: 
  Country: None (occurrence: None)
  Receive Date: 20120127
  Receipt Date: 20110224
  Transmission Date: 20120608
  Serious: No
  Sender: FDA-Public Use
  Company Number: US-ABBOTT-11P-163-0708051-00

PATIENT
  Sex: Male
  Weight: 127.12 kg

DRUGS (7)
  1. LAMICTAL [Concomitant]
     Indication: AFFECTIVE DISORDER
  2. CELEBREX [Concomitant]
     Indication: ARTHRALGIA
  3. HUMIRA [Suspect]
     Indication: PSORIASIS
     Dates: start: 20110223, end: 20110223
  4. LITHIUM CARBONATE [Concomitant]
     Indication: AFFECTIVE DISORDER
  5. DEPAKOTE [Concomitant]
     Indication: AFFECTIVE DISORDER
  6. ZYPREXA [Concomitant]
     Indication: AFFECTIVE DISORDER
  7. CYMBALTA [Concomitant]
     Indication: AFFECTIVE DISORDER

REACTIONS (1)
  - DEPRESSION [None]
